FAERS Safety Report 25132438 (Version 3)
Quarter: 2025Q2

REPORT INFORMATION
  Report Type: Spontaneous
  Country: ES (occurrence: ES)
  Receive Date: 20250328
  Receipt Date: 20250423
  Transmission Date: 20250717
  Serious: Yes (Death, Other)
  Sender: AUROBINDO
  Company Number: ES-ATNAHS-ATNAHS20241200948

PATIENT
  Age: 53 Year
  Sex: Male
  Weight: 82 kg

DRUGS (10)
  1. NAPROXEN SODIUM [Suspect]
     Active Substance: NAPROXEN SODIUM
     Indication: Fracture
     Dosage: 550 MILLIGRAM, TWO TIMES A DAY
     Route: 065
  2. NAPROXEN SODIUM [Suspect]
     Active Substance: NAPROXEN SODIUM
     Indication: Musculoskeletal chest pain
  3. DIAZEPAM [Suspect]
     Active Substance: DIAZEPAM
     Indication: Product used for unknown indication
     Route: 065
  4. DEXKETOPROFEN [Suspect]
     Active Substance: DEXKETOPROFEN
     Indication: Product used for unknown indication
     Route: 030
  5. DEXKETOPROFEN [Suspect]
     Active Substance: DEXKETOPROFEN
     Indication: Musculoskeletal chest pain
     Route: 030
  6. TRAMADOL [Suspect]
     Active Substance: TRAMADOL
     Indication: Musculoskeletal chest pain
     Route: 065
  7. METAMIZOLE CALCIUM [Suspect]
     Active Substance: METAMIZOLE CALCIUM
     Indication: Product used for unknown indication
     Dosage: 575 MILLIGRAM, 3 TIMES A DAY (575 MILLIGRAM, 3X/DAY)
     Route: 065
  8. METAMIZOLE CALCIUM [Suspect]
     Active Substance: METAMIZOLE CALCIUM
     Indication: Musculoskeletal chest pain
  9. MEPERIDINE HYDROCHLORIDE [Suspect]
     Active Substance: MEPERIDINE HYDROCHLORIDE
     Indication: Product used for unknown indication
     Route: 065
  10. DEXKETOPROFEN\TRAMADOL [Suspect]
     Active Substance: DEXKETOPROFEN\TRAMADOL
     Indication: Musculoskeletal chest pain
     Route: 065

REACTIONS (1)
  - Duodenal ulcer [Fatal]
